FAERS Safety Report 7676989-4 (Version None)
Quarter: 2011Q3

REPORT INFORMATION
  Report Type: 
  Country: None (occurrence: None)
  Receive Date: 20110808
  Receipt Date: 20110801
  Transmission Date: 20111222
  Serious: Yes (Hospitalization)
  Sender: FDA-Public Use
  Company Number: ACY-11-08

PATIENT
  Age: 29 Year
  Sex: Female

DRUGS (2)
  1. ACYCLOVIR [Suspect]
     Indication: NECROTISING RETINITIS
     Dosage: IV 10MG/KG 3XS DAY
     Route: 042
  2. DEXAMETHASONE [Concomitant]

REACTIONS (5)
  - RASH MACULAR [None]
  - CHEST DISCOMFORT [None]
  - ANGIOEDEMA [None]
  - VISION BLURRED [None]
  - CD4 LYMPHOCYTES DECREASED [None]
